FAERS Safety Report 12015070 (Version 1)
Quarter: 2016Q1

REPORT INFORMATION
  Report Type: Spontaneous
  Country: US (occurrence: US)
  Receive Date: 20160205
  Receipt Date: 20160205
  Transmission Date: 20160526
  Serious: No
  Sender: FDA-Public Use
  Company Number: US-AMGEN-USASP2015016736

PATIENT
  Sex: Female

DRUGS (49)
  1. FASLODEX [Concomitant]
     Active Substance: FULVESTRANT
     Indication: BREAST CANCER RECURRENT
     Dosage: UNK
  2. HALAVEN [Concomitant]
     Active Substance: ERIBULIN MESYLATE
     Indication: BREAST CANCER RECURRENT
     Dosage: UNK
  3. HALAVEN [Concomitant]
     Active Substance: ERIBULIN MESYLATE
     Indication: METASTASES TO LUNG
  4. HALAVEN [Concomitant]
     Active Substance: ERIBULIN MESYLATE
     Indication: METASTASES TO LYMPH NODES
  5. FEMARA [Concomitant]
     Active Substance: LETROZOLE
     Indication: METASTASES TO SPINE
  6. ZOMETA [Concomitant]
     Active Substance: ZOLEDRONIC ACID
     Indication: METASTASES TO SPINE
  7. XELODA [Concomitant]
     Active Substance: CAPECITABINE
     Indication: METASTASES TO LYMPH NODES
  8. TAXOTERE [Concomitant]
     Active Substance: DOCETAXEL
     Indication: BREAST CANCER RECURRENT
     Dosage: UNK
  9. TAXOTERE [Concomitant]
     Active Substance: DOCETAXEL
     Indication: METASTASES TO LUNG
  10. HALAVEN [Concomitant]
     Active Substance: ERIBULIN MESYLATE
     Indication: METASTASES TO CHEST WALL
  11. ZOMETA [Concomitant]
     Active Substance: ZOLEDRONIC ACID
     Indication: METASTASES TO CHEST WALL
  12. XELODA [Concomitant]
     Active Substance: CAPECITABINE
     Indication: METASTASES TO BONE
  13. GEMZAR [Concomitant]
     Active Substance: GEMCITABINE HYDROCHLORIDE
     Indication: METASTASES TO BONE
  14. TAXOTERE [Concomitant]
     Active Substance: DOCETAXEL
     Indication: METASTASES TO SPINE
  15. HALAVEN [Concomitant]
     Active Substance: ERIBULIN MESYLATE
     Indication: METASTASES TO BONE
  16. FEMARA [Concomitant]
     Active Substance: LETROZOLE
     Indication: METASTASES TO CHEST WALL
  17. FEMARA [Concomitant]
     Active Substance: LETROZOLE
     Indication: METASTASES TO LYMPH NODES
  18. FASLODEX [Concomitant]
     Active Substance: FULVESTRANT
     Indication: METASTASES TO CHEST WALL
  19. FASLODEX [Concomitant]
     Active Substance: FULVESTRANT
     Indication: METASTASES TO SPINE
  20. ZOMETA [Concomitant]
     Active Substance: ZOLEDRONIC ACID
     Indication: BREAST CANCER RECURRENT
     Dosage: UNK
  21. ZOMETA [Concomitant]
     Active Substance: ZOLEDRONIC ACID
     Indication: METASTASES TO LUNG
  22. XELODA [Concomitant]
     Active Substance: CAPECITABINE
     Indication: METASTASES TO LUNG
  23. FEMARA [Concomitant]
     Active Substance: LETROZOLE
     Indication: METASTASES TO BONE
  24. FASLODEX [Concomitant]
     Active Substance: FULVESTRANT
     Indication: METASTASES TO LUNG
  25. ZOMETA [Concomitant]
     Active Substance: ZOLEDRONIC ACID
     Indication: METASTASES TO LYMPH NODES
  26. XELODA [Concomitant]
     Active Substance: CAPECITABINE
     Indication: METASTASES TO SPINE
  27. GEMZAR [Concomitant]
     Active Substance: GEMCITABINE HYDROCHLORIDE
     Indication: METASTASES TO LUNG
  28. TAXOTERE [Concomitant]
     Active Substance: DOCETAXEL
     Indication: METASTASES TO BONE
  29. ADRIAMYCIN [Concomitant]
     Active Substance: DOXORUBICIN HYDROCHLORIDE
     Indication: METASTASES TO BONE
  30. NEULASTA [Suspect]
     Active Substance: PEGFILGRASTIM
     Indication: PRODUCT USED FOR UNKNOWN INDICATION
     Dosage: UNK
     Route: 065
  31. ZOMETA [Concomitant]
     Active Substance: ZOLEDRONIC ACID
     Indication: METASTASES TO BONE
  32. XELODA [Concomitant]
     Active Substance: CAPECITABINE
     Indication: METASTASES TO CHEST WALL
  33. TAXOTERE [Concomitant]
     Active Substance: DOCETAXEL
     Indication: METASTASES TO LYMPH NODES
  34. ADRIAMYCIN [Concomitant]
     Active Substance: DOXORUBICIN HYDROCHLORIDE
     Indication: BREAST CANCER RECURRENT
     Dosage: UNK
  35. FEMARA [Concomitant]
     Active Substance: LETROZOLE
     Indication: METASTASES TO LUNG
  36. GEMZAR [Concomitant]
     Active Substance: GEMCITABINE HYDROCHLORIDE
     Indication: BREAST CANCER RECURRENT
     Dosage: UNK
  37. GEMZAR [Concomitant]
     Active Substance: GEMCITABINE HYDROCHLORIDE
     Indication: METASTASES TO CHEST WALL
  38. GEMZAR [Concomitant]
     Active Substance: GEMCITABINE HYDROCHLORIDE
     Indication: METASTASES TO SPINE
  39. ADRIAMYCIN [Concomitant]
     Active Substance: DOXORUBICIN HYDROCHLORIDE
     Indication: METASTASES TO LUNG
  40. ADRIAMYCIN [Concomitant]
     Active Substance: DOXORUBICIN HYDROCHLORIDE
     Indication: METASTASES TO LYMPH NODES
  41. ADRIAMYCIN [Concomitant]
     Active Substance: DOXORUBICIN HYDROCHLORIDE
     Indication: METASTASES TO SPINE
  42. HALAVEN [Concomitant]
     Active Substance: ERIBULIN MESYLATE
     Indication: METASTASES TO SPINE
  43. FEMARA [Concomitant]
     Active Substance: LETROZOLE
     Indication: BREAST CANCER RECURRENT
     Dosage: UNK
  44. FASLODEX [Concomitant]
     Active Substance: FULVESTRANT
     Indication: METASTASES TO LYMPH NODES
  45. FASLODEX [Concomitant]
     Active Substance: FULVESTRANT
     Indication: METASTASES TO BONE
  46. XELODA [Concomitant]
     Active Substance: CAPECITABINE
     Indication: BREAST CANCER RECURRENT
     Dosage: UNK
  47. GEMZAR [Concomitant]
     Active Substance: GEMCITABINE HYDROCHLORIDE
     Indication: METASTASES TO LYMPH NODES
  48. TAXOTERE [Concomitant]
     Active Substance: DOCETAXEL
     Indication: METASTASES TO CHEST WALL
  49. ADRIAMYCIN [Concomitant]
     Active Substance: DOXORUBICIN HYDROCHLORIDE
     Indication: METASTASES TO CHEST WALL

REACTIONS (8)
  - Nausea [Unknown]
  - Tremor [Unknown]
  - Bedridden [Unknown]
  - Paranasal sinus hypersecretion [Not Recovered/Not Resolved]
  - Lacrimation increased [Not Recovered/Not Resolved]
  - Alopecia [Unknown]
  - Bone pain [Unknown]
  - Malaise [Unknown]
